FAERS Safety Report 9122228 (Version 3)
Quarter: 2013Q1

REPORT INFORMATION
  Report Type: Spontaneous
  Country: US (occurrence: US)
  Receive Date: 20130227
  Receipt Date: 20130325
  Transmission Date: 20140127
  Serious: No
  Sender: FDA-Public Use
  Company Number: US-ELI_LILLY_AND_COMPANY-US201212008449

PATIENT
  Sex: Female
  Weight: 92.52 kg

DRUGS (4)
  1. HUMULIN REGULAR [Suspect]
     Indication: TYPE 2 DIABETES MELLITUS
     Dosage: 125 U, QD
     Dates: start: 201212
  2. HUMULIN REGULAR [Suspect]
     Dosage: 10 U, TID
     Dates: start: 201212
  3. HUMULIN REGULAR [Suspect]
     Dosage: 11 U, TID
  4. NOVOLIN [Concomitant]

REACTIONS (5)
  - Chest pain [Recovered/Resolved]
  - Angina pectoris [Recovered/Resolved]
  - Peripheral coldness [Recovering/Resolving]
  - Hyperglycaemia [Recovered/Resolved]
  - Oedema peripheral [Recovered/Resolved]
